FAERS Safety Report 4766993-8 (Version None)
Quarter: 2005Q3

REPORT INFORMATION
  Report Type: 
  Country: None (occurrence: None)
  Receive Date: 20050909
  Receipt Date: 20050909
  Transmission Date: 20060218
  Serious: Yes (Other)
  Sender: FDA-Public Use
  Company Number: None

PATIENT
  Age: 46 Year
  Sex: Male
  Weight: 95.2554 kg

DRUGS (6)
  1. STAVUDINE [Suspect]
     Indication: HIV INFECTION
     Dosage: 40 MG BID PO
     Route: 048
     Dates: start: 20050804, end: 20050819
  2. TRUVADA [Suspect]
     Indication: HIV INFECTION
     Dosage: 200MG/300MG PO
     Route: 048
     Dates: start: 20050804, end: 20050819
  3. LEXIVA [Suspect]
     Indication: HIV INFECTION
     Dosage: 700 MG BID PO
     Route: 048
     Dates: start: 20050804, end: 20050819
  4. INVIRASE [Suspect]
     Indication: HIV INFECTION
     Dosage: 1000 MG BID PO
     Route: 048
     Dates: start: 20050804, end: 20050819
  5. NORVIR [Suspect]
     Indication: HIV INFECTION
     Dosage: 100 MG BID PO
     Route: 048
     Dates: start: 20050804, end: 20050819
  6. COLCHICINE [Concomitant]

REACTIONS (19)
  - ANOREXIA [None]
  - ARTHRALGIA [None]
  - BACK PAIN [None]
  - COUGH [None]
  - DIFFICULTY IN WALKING [None]
  - DIZZINESS [None]
  - DYSPNOEA [None]
  - HYPERSENSITIVITY [None]
  - IMPAIRED WORK ABILITY [None]
  - JOINT SWELLING [None]
  - MOBILITY DECREASED [None]
  - MUSCLE SPASMS [None]
  - NASAL CONGESTION [None]
  - NECK PAIN [None]
  - NEUROPATHY [None]
  - PAIN IN EXTREMITY [None]
  - PRURITUS [None]
  - TINNITUS [None]
  - VISION BLURRED [None]
